FAERS Safety Report 23200728 (Version 1)
Quarter: 2023Q4

REPORT INFORMATION
  Report Type: Report from Study
  Country: US (occurrence: US)
  Receive Date: 20231118
  Receipt Date: 20231118
  Transmission Date: 20240110
  Serious: Yes (Other)
  Sender: FDA-Public Use
  Company Number: US-AstraZeneca-CH-00507226A

PATIENT

DRUGS (4)
  1. SOLIRIS [Suspect]
     Active Substance: ECULIZUMAB
     Indication: Product used for unknown indication
     Dosage: UNK
     Route: 065
  2. MELATONIN [Concomitant]
     Active Substance: MELATONIN
     Indication: Product used for unknown indication
     Dosage: UNK
     Route: 065
  3. PREDNISONE [Concomitant]
     Active Substance: PREDNISONE
     Indication: Product used for unknown indication
     Dosage: 40 UNK
     Route: 065
  4. PREDNISONE [Concomitant]
     Active Substance: PREDNISONE
     Dosage: 30 UNK
     Route: 065

REACTIONS (9)
  - Parkinson^s disease [Unknown]
  - Thymus disorder [Unknown]
  - Restless legs syndrome [Unknown]
  - Muscular weakness [Unknown]
  - Weight increased [Unknown]
  - Muscle twitching [Unknown]
  - Dyskinesia [Unknown]
  - Pain in extremity [Unknown]
  - Sleep disorder [Recovering/Resolving]
